FAERS Safety Report 9541950 (Version 1)
Quarter: 2013Q3

REPORT INFORMATION
  Report Type: Spontaneous
  Country: US (occurrence: None)
  Receive Date: 20130919
  Receipt Date: 20130919
  Transmission Date: 20140515
  Serious: No
  Sender: FDA-Public Use
  Company Number: None

PATIENT
  Age: 62 Year
  Sex: 0
  Weight: 94.35 kg

DRUGS (1)
  1. ESCITALOPRAM [Suspect]
     Indication: DEPRESSION
     Dosage: 1.5, ONCE DAILY, TAKEN BY MOUTH

REACTIONS (3)
  - Product contamination physical [None]
  - Drug effect decreased [None]
  - Product substitution issue [None]
